FAERS Safety Report 10191623 (Version 1)
Quarter: 2014Q2

REPORT INFORMATION
  Report Type: Spontaneous
  Country: GB (occurrence: None)
  Receive Date: 20140521
  Receipt Date: 20140521
  Transmission Date: 20141212
  Serious: Yes (Hospitalization)
  Sender: FDA-Public Use
  Company Number: AUR-APL-2014-05914

PATIENT
  Age: 82 Year
  Sex: Male
  Weight: 59 kg

DRUGS (1)
  1. PIPERACILLIN+TAZOBACTAM (PIPERACILLIN, TAZOBACTAM) [Suspect]
     Indication: PNEUMONIA
     Route: 042
     Dates: start: 20140501, end: 20140503

REACTIONS (5)
  - Rash macular [None]
  - Rash maculo-papular [None]
  - Rash erythematous [None]
  - Rash pustular [None]
  - Herpes zoster [None]
